FAERS Safety Report 6143002-X (Version None)
Quarter: 2009Q2

REPORT INFORMATION
  Report Type: 
  Country: None (occurrence: None)
  Receive Date: 20090403
  Receipt Date: 20090323
  Transmission Date: 20091009
  Serious: Yes (Death, Other)
  Sender: FDA-Public Use
  Company Number: JP-PFIZER INC-2008087616

PATIENT

DRUGS (5)
  1. SUNITINIB MALATE [Suspect]
     Indication: GASTROINTESTINAL STROMAL TUMOUR
     Dosage: EVERY DAY
     Route: 048
     Dates: start: 20080804
  2. FERROMIA [Concomitant]
     Route: 048
     Dates: start: 20080804
  3. GASTER [Concomitant]
     Route: 048
  4. BERIZYM [Concomitant]
     Route: 048
  5. LAC B [Concomitant]
     Route: 048

REACTIONS (3)
  - PLATELET COUNT DECREASED [None]
  - SEPSIS [None]
  - THROMBOTIC MICROANGIOPATHY [None]
